FAERS Safety Report 7164227-0 (Version None)
Quarter: 2010Q4

REPORT INFORMATION
  Report Type: 
  Country: None (occurrence: None)
  Receive Date: 20101123
  Receipt Date: 20101004
  Transmission Date: 20110411
  Serious: No
  Sender: FDA-Public Use
  Company Number: 016137

PATIENT
  Sex: Female
  Weight: 79.4 kg

DRUGS (21)
  1. CIMZIA [Suspect]
     Indication: RHEUMATOID ARTHRITIS
     Dosage: SUBCUTANEOUS; 200 MG 1X/2 WEEKS SUBCUTANEOUS, 200 MG 1X/2 WEEKS SUBCUTANEOUS
     Route: 058
     Dates: start: 20091007
  2. CIMZIA [Suspect]
     Indication: RHEUMATOID ARTHRITIS
     Dosage: SUBCUTANEOUS; 200 MG 1X/2 WEEKS SUBCUTANEOUS, 200 MG 1X/2 WEEKS SUBCUTANEOUS
     Route: 058
     Dates: start: 20091201
  3. CIMZIA [Suspect]
     Indication: RHEUMATOID ARTHRITIS
     Dosage: SUBCUTANEOUS; 200 MG 1X/2 WEEKS SUBCUTANEOUS, 200 MG 1X/2 WEEKS SUBCUTANEOUS
     Route: 058
     Dates: start: 20100722
  4. METHOTREXATE [Concomitant]
  5. PREDNISONE [Concomitant]
  6. PROPOX-N [Concomitant]
  7. OMEPRAZOLE [Concomitant]
  8. GABAPENTIN [Concomitant]
  9. TRAMADOL [Concomitant]
  10. FOLIC ACID [Concomitant]
  11. FEXOFENADINE HCL [Concomitant]
  12. NADOLOL [Concomitant]
  13. FENOFIBRATE [Concomitant]
  14. LISINOPRIL HYDROCHLORTHIAZID [Concomitant]
  15. SIMVASTATIN [Concomitant]
  16. CYCLOBENZAPRINE [Concomitant]
  17. PROAIR HFA [Concomitant]
  18. ACETYLSALICYLIC ACID W/BUTALBITAL [Concomitant]
  19. LORAZEPAM [Concomitant]
  20. EPIPEN [Concomitant]
  21. LIDOCAINE [Concomitant]

REACTIONS (4)
  - DIARRHOEA [None]
  - FAECAL INCONTINENCE [None]
  - RESPIRATORY TRACT INFECTION [None]
  - SINUSITIS [None]
